FAERS Safety Report 15882320 (Version 1)
Quarter: 2019Q1

REPORT INFORMATION
  Report Type: Spontaneous
  Country: GB (occurrence: GB)
  Receive Date: 20190128
  Receipt Date: 20190128
  Transmission Date: 20190417
  Serious: Yes (Life-Threatening, Other)
  Sender: FDA-Public Use
  Company Number: GB-AUROBINDO-AUR-APL-2019-003006

PATIENT
  Age: 28 Year
  Sex: Male
  Weight: 88.9 kg

DRUGS (1)
  1. FINASTERIDE. [Suspect]
     Active Substance: FINASTERIDE
     Indication: ALOPECIA
     Dosage: 2.5 MILLIGRAM
     Route: 048
     Dates: start: 201706, end: 201708

REACTIONS (6)
  - Erectile dysfunction [Unknown]
  - Male genital atrophy [Unknown]
  - Suicidal ideation [Unknown]
  - Libido decreased [Not Recovered/Not Resolved]
  - Genital hypoaesthesia [Unknown]
  - Ejaculation failure [Unknown]

NARRATIVE: CASE EVENT DATE: 201708
